FAERS Safety Report 13194815 (Version 11)
Quarter: 2018Q2

REPORT INFORMATION
  Report Type: Spontaneous
  Country: KR (occurrence: KR)
  Receive Date: 20170207
  Receipt Date: 20180525
  Transmission Date: 20180711
  Serious: Yes (Hospitalization, Other)
  Sender: FDA-Public Use
  Company Number: KR-009507513-1702KOR001740

PATIENT
  Age: 58 Year
  Sex: Female
  Weight: 55.9 kg

DRUGS (59)
  1. EMEND (FOSAPREPITANT DIMEGLUMINE) [Suspect]
     Active Substance: FOSAPREPITANT DIMEGLUMINE
     Dosage: 150 MG, ONCE
     Route: 042
     Dates: start: 20160901, end: 20160901
  2. EMEND (FOSAPREPITANT DIMEGLUMINE) [Suspect]
     Active Substance: FOSAPREPITANT DIMEGLUMINE
     Dosage: 150 MG, ONCE
     Route: 042
     Dates: start: 20160922, end: 20160922
  3. TAXOTERE [Concomitant]
     Active Substance: DOCETAXEL
     Dosage: 112 MG, ONCE, CYCLE 4, STRENGHT: 80MG/4ML
     Route: 042
     Dates: start: 20161014, end: 20161014
  4. TAXOTERE [Concomitant]
     Active Substance: DOCETAXEL
     Dosage: 109 MG, ONCE, CYCLE 6, STRENGHT: 80MG/4ML
     Route: 042
     Dates: start: 20161206, end: 20161206
  5. CISPLAN [Concomitant]
     Active Substance: CISPLATIN
     Dosage: 88 MG, ONCE, CYCLE 3, STRENGTH: 50MG/100ML
     Route: 042
     Dates: start: 20160922, end: 20160922
  6. DEXAMETHASONE SODIUM PHOSPHATE. [Concomitant]
     Active Substance: DEXAMETHASONE SODIUM PHOSPHATE
     Dosage: 12 MG, ONCE, STRENGTH: 5MG/ML
     Route: 042
     Dates: start: 20161014, end: 20161014
  7. DEXAMETHASONE SODIUM PHOSPHATE. [Concomitant]
     Active Substance: DEXAMETHASONE SODIUM PHOSPHATE
     Dosage: 4 MG, BID, STRENGTH: 5MG/ML
     Route: 042
     Dates: start: 20161017, end: 20161017
  8. DEXAMETHASONE SODIUM PHOSPHATE. [Concomitant]
     Active Substance: DEXAMETHASONE SODIUM PHOSPHATE
     Dosage: 12 MG, ONCE, STRENGTH: 5MG/ML
     Route: 042
     Dates: start: 20161206, end: 20161206
  9. DEXAMETHASONE SODIUM PHOSPHATE. [Concomitant]
     Active Substance: DEXAMETHASONE SODIUM PHOSPHATE
     Dosage: 5 MG, QD, STRENTH: 5MG/ML
     Route: 042
     Dates: start: 20160820, end: 20160824
  10. DEXAMETHASONE. [Concomitant]
     Active Substance: DEXAMETHASONE
     Dosage: 4 MG, QD
     Route: 048
     Dates: start: 20161112, end: 20161114
  11. LASIX [Concomitant]
     Active Substance: FUROSEMIDE
     Dosage: 20 MG, ONCE, STRENGTH: 20MG/2ML
     Route: 042
     Dates: start: 20161111, end: 20161111
  12. EMEND (FOSAPREPITANT DIMEGLUMINE) [Suspect]
     Active Substance: FOSAPREPITANT DIMEGLUMINE
     Dosage: 150 MG, ONCE
     Route: 042
     Dates: start: 20161111, end: 20161111
  13. DEXAMETHASONE SODIUM PHOSPHATE. [Concomitant]
     Active Substance: DEXAMETHASONE SODIUM PHOSPHATE
     Dosage: 5 MG, QD, STRENTH: 5MG/ML
     Route: 042
     Dates: start: 20160929, end: 20161014
  14. ALOXI [Concomitant]
     Active Substance: PALONOSETRON HYDROCHLORIDE
     Dosage: 5 ML, ONCE
     Route: 042
     Dates: start: 20160922, end: 20160922
  15. MACPERAN [Concomitant]
     Active Substance: METOCLOPRAMIDE HYDROCHLORIDE
     Indication: ABDOMINAL DISTENSION
     Dosage: 10 MG, TID
     Route: 042
     Dates: start: 20160811, end: 20160912
  16. MORPHINE HYDROCHLORIDE [Concomitant]
     Active Substance: MORPHINE HYDROCHLORIDE
     Indication: CANCER PAIN
     Dosage: 48 MG, QD; CONTINUOUS MORPHINE 2MG/HR
     Route: 042
     Dates: start: 20160811, end: 20160825
  17. NEXIUM I.V. [Concomitant]
     Active Substance: ESOMEPRAZOLE SODIUM
     Dosage: 40 MG, QD
     Route: 042
     Dates: start: 20161114, end: 20161128
  18. EMEND (FOSAPREPITANT DIMEGLUMINE) [Suspect]
     Active Substance: FOSAPREPITANT DIMEGLUMINE
     Dosage: 150 MG, ONCE
     Route: 042
     Dates: start: 20161014, end: 20161014
  19. DEXAMETHASONE SODIUM PHOSPHATE. [Concomitant]
     Active Substance: DEXAMETHASONE SODIUM PHOSPHATE
     Dosage: 12 MG, ONCE, STRENGTH: 5MG/ML
     Route: 042
     Dates: start: 20161111, end: 20161111
  20. DEXAMETHASONE. [Concomitant]
     Active Substance: DEXAMETHASONE
     Indication: PROPHYLAXIS OF NAUSEA AND VOMITING
     Dosage: 4 MG, BID
     Route: 048
     Dates: start: 20160813, end: 20160815
  21. DICHLOZID [Concomitant]
     Indication: HYPERTENSION
     Dosage: 12.5 MG, BID
     Route: 048
     Dates: end: 20160921
  22. CURAN [Concomitant]
     Active Substance: RANITIDINE HYDROCHLORIDE
     Dosage: 50 MG, ONCE, STRENGTH: 50MG/2ML
     Route: 042
     Dates: start: 20160922, end: 20160922
  23. NEXIUM I.V. [Concomitant]
     Active Substance: ESOMEPRAZOLE SODIUM
     Indication: PROPHYLAXIS
     Dosage: 40 MG, QD
     Route: 042
     Dates: start: 20160812, end: 20160912
  24. EMEND (FOSAPREPITANT DIMEGLUMINE) [Suspect]
     Active Substance: FOSAPREPITANT DIMEGLUMINE
     Dosage: 150 MG, ONCE
     Route: 042
     Dates: start: 20161206, end: 20161206
  25. DEXAMETHASONE SODIUM PHOSPHATE. [Concomitant]
     Active Substance: DEXAMETHASONE SODIUM PHOSPHATE
     Indication: PROPHYLAXIS OF NAUSEA AND VOMITING
     Dosage: 12 MG, ONCE, STRENGTH: 5MG/ML
     Route: 042
     Dates: start: 20160812, end: 20160812
  26. DEXAMETHASONE SODIUM PHOSPHATE. [Concomitant]
     Active Substance: DEXAMETHASONE SODIUM PHOSPHATE
     Dosage: 17 MG, ONCE, STRENGTH: 5MG/ML
     Route: 042
     Dates: start: 20160922, end: 20160922
  27. DEXAMETHASONE SODIUM PHOSPHATE. [Concomitant]
     Active Substance: DEXAMETHASONE SODIUM PHOSPHATE
     Dosage: 4 MG, BID, STRENGTH: 5MG/ML
     Route: 042
     Dates: start: 20160923, end: 20160925
  28. DEXAMETHASONE SODIUM PHOSPHATE. [Concomitant]
     Active Substance: DEXAMETHASONE SODIUM PHOSPHATE
     Dosage: 10 MG, ONCE, STRENGTH: 5MG/ML
     Route: 042
     Dates: start: 20161207, end: 20161207
  29. CURAN [Concomitant]
     Active Substance: RANITIDINE HYDROCHLORIDE
     Dosage: 50 MG, ONCE, STRENGTH: 50MG/2ML
     Route: 042
     Dates: start: 20161111, end: 20161111
  30. EMEND (FOSAPREPITANT DIMEGLUMINE) [Suspect]
     Active Substance: FOSAPREPITANT DIMEGLUMINE
     Indication: PROPHYLAXIS OF NAUSEA AND VOMITING
     Dosage: 150 MG, ONCE
     Route: 042
     Dates: start: 20160812, end: 20160812
  31. TAXOTERE [Concomitant]
     Active Substance: DOCETAXEL
     Dosage: 111 MG, ONCE, CYCLE 3, STRENGHT: 80MG/4ML
     Route: 042
     Dates: start: 20160922, end: 20160922
  32. DEXAMETHASONE SODIUM PHOSPHATE. [Concomitant]
     Active Substance: DEXAMETHASONE SODIUM PHOSPHATE
     Dosage: 4 MG, BID, STRENGTH: 5MG/ML
     Route: 042
     Dates: start: 20161015, end: 20161015
  33. DEXAMETHASONE. [Concomitant]
     Active Substance: DEXAMETHASONE
     Dosage: 4 MG, BID
     Route: 048
     Dates: start: 20161210, end: 20161211
  34. CURAN [Concomitant]
     Active Substance: RANITIDINE HYDROCHLORIDE
     Indication: PROPHYLAXIS
     Dosage: 50 MG, ONCE, STRENGTH: 50MG/2ML
     Route: 042
     Dates: start: 20160812, end: 20160812
  35. CURAN [Concomitant]
     Active Substance: RANITIDINE HYDROCHLORIDE
     Dosage: 50 MG, ONCE, STRENGTH: 50MG/2ML
     Route: 042
     Dates: start: 20160901, end: 20160901
  36. CURAN [Concomitant]
     Active Substance: RANITIDINE HYDROCHLORIDE
     Dosage: 50 MG, ONCE, STRENGTH: 50MG/2ML
     Route: 042
     Dates: start: 20161014, end: 20161014
  37. OMNICEF [Concomitant]
     Active Substance: CEFDINIR
     Indication: URINARY TRACT INFECTION
     Dosage: 200 MG, BID
     Route: 048
     Dates: start: 20160812, end: 20160818
  38. TAXOTERE [Concomitant]
     Active Substance: DOCETAXEL
     Dosage: 113 MG, ONCE, CYCLE 2, STRENGHT: 80MG/4ML
     Route: 042
     Dates: start: 20160901, end: 20160901
  39. TAXOTERE [Concomitant]
     Active Substance: DOCETAXEL
     Dosage: 109 MG, ONCE, CYCLE 5, STRENGHT: 80MG/4ML
     Route: 042
     Dates: start: 20161111, end: 20161111
  40. DEXAMETHASONE. [Concomitant]
     Active Substance: DEXAMETHASONE
     Dosage: 4 MG, BID
     Route: 048
     Dates: start: 20161016, end: 20161016
  41. ALOXI [Concomitant]
     Active Substance: PALONOSETRON HYDROCHLORIDE
     Indication: PROPHYLAXIS OF NAUSEA AND VOMITING
     Dosage: 5 ML, ONCE
     Route: 042
     Dates: start: 20160812, end: 20160812
  42. MACPERAN [Concomitant]
     Active Substance: METOCLOPRAMIDE HYDROCHLORIDE
     Indication: PROPHYLAXIS OF NAUSEA AND VOMITING
     Dosage: 10 MG, TID
     Route: 042
     Dates: start: 20160921, end: 20160930
  43. MACPERAN [Concomitant]
     Active Substance: METOCLOPRAMIDE HYDROCHLORIDE
     Indication: NAUSEA
     Dosage: 10 MG, TID
     Route: 042
     Dates: start: 20161110, end: 20161112
  44. MACPERAN [Concomitant]
     Active Substance: METOCLOPRAMIDE HYDROCHLORIDE
     Dosage: 10 MG, TID
     Route: 042
     Dates: start: 20161114, end: 20161128
  45. CURAN [Concomitant]
     Active Substance: RANITIDINE HYDROCHLORIDE
     Dosage: 50 MG, QD, STRENGTH: 50MG/2ML
     Route: 042
     Dates: start: 20161206, end: 20161207
  46. LASIX [Concomitant]
     Active Substance: FUROSEMIDE
     Dosage: 20 MG, ONCE, STRENGTH: 20MG/2ML
     Route: 042
     Dates: start: 20161014, end: 20161014
  47. CISPLAN [Concomitant]
     Active Substance: CISPLATIN
     Dosage: 90 MG, ONCE, CYCLE 2, STRENGTH: 50MG/100ML
     Route: 042
     Dates: start: 20160901, end: 20160901
  48. CISPLAN [Concomitant]
     Active Substance: CISPLATIN
     Dosage: 87 MG, ONCE, CYCLE 5, STRENGTH: 50MG/100ML
     Route: 042
     Dates: start: 20161111, end: 20161111
  49. CISPLAN [Concomitant]
     Active Substance: CISPLATIN
     Dosage: 87 MG, ONCE, CYCLE 6, STRENGTH: 50MG/100ML
     Route: 042
     Dates: start: 20161206, end: 20161206
  50. TENORMIN [Concomitant]
     Active Substance: ATENOLOL
     Indication: HYPERTENSION
     Dosage: 25 MG, BID
     Route: 048
     Dates: end: 20160921
  51. LASIX [Concomitant]
     Active Substance: FUROSEMIDE
     Dosage: 20 MG, ONCE, STRENGTH: 20MG/2ML
     Route: 042
     Dates: start: 20160901, end: 20160901
  52. TAXOTERE [Concomitant]
     Active Substance: DOCETAXEL
     Indication: GASTRIC CANCER
     Dosage: 113 MG, ONCE, CYCLE 1, STRENGHT: 80MG/4ML
     Route: 042
     Dates: start: 20160812, end: 20160812
  53. CISPLAN [Concomitant]
     Active Substance: CISPLATIN
     Indication: GASTRIC CANCER
     Dosage: 91 MG, ONCE, CYCLE 1, STRENGTH: 50MG/100ML
     Route: 042
     Dates: start: 20160812, end: 20160812
  54. CISPLAN [Concomitant]
     Active Substance: CISPLATIN
     Dosage: 90 MG, ONCE, CYCLE 4, STRENGTH: 50MG/100ML
     Route: 042
     Dates: start: 20161014, end: 20161014
  55. DEXAMETHASONE SODIUM PHOSPHATE. [Concomitant]
     Active Substance: DEXAMETHASONE SODIUM PHOSPHATE
     Indication: NAUSEA
     Dosage: 12 MG, ONCE, STRENGTH: 5MG/ML
     Route: 042
     Dates: start: 20160901, end: 20160901
  56. DEXAMETHASONE SODIUM PHOSPHATE. [Concomitant]
     Active Substance: DEXAMETHASONE SODIUM PHOSPHATE
     Dosage: 4 MG, BID, STRENGTH: 5MG/ML
     Route: 042
     Dates: start: 20160902, end: 20160902
  57. DEXAMETHASONE SODIUM PHOSPHATE. [Concomitant]
     Active Substance: DEXAMETHASONE SODIUM PHOSPHATE
     Dosage: 10 MG, ONCE, STRENGTH: 5MG/ML
     Route: 042
     Dates: start: 20161112, end: 20161112
  58. LASIX [Concomitant]
     Active Substance: FUROSEMIDE
     Indication: PROPHYLAXIS
     Dosage: 20 MG, ONCE, STRENGTH: 20MG/2ML
     Route: 042
     Dates: start: 20160812, end: 20160812
  59. NEXIUM I.V. [Concomitant]
     Active Substance: ESOMEPRAZOLE SODIUM
     Dosage: 40 MG, QD
     Route: 042
     Dates: start: 20160921, end: 20161004

REACTIONS (16)
  - Ischaemia [Recovered/Resolved]
  - Neutropenia [Recovered/Resolved]
  - Paraesthesia [Not Recovered/Not Resolved]
  - Supraventricular tachycardia [Recovered/Resolved]
  - Febrile neutropenia [Recovered/Resolved]
  - Neutropenia [Recovered/Resolved]
  - Neutropenia [Recovered/Resolved]
  - Nausea [Recovered/Resolved]
  - Liver function test increased [Recovered/Resolved]
  - Nausea [Recovered/Resolved]
  - Cholecystitis acute [Recovered/Resolved]
  - Pyrexia [Recovered/Resolved]
  - Pulmonary infarction [Recovered/Resolved]
  - Neutropenia [Recovered/Resolved]
  - Neutropenia [Recovered/Resolved]
  - Nausea [Recovered/Resolved]

NARRATIVE: CASE EVENT DATE: 20160818
